FAERS Safety Report 5321852-7 (Version None)
Quarter: 2007Q2

REPORT INFORMATION
  Report Type: 
  Country: None (occurrence: None)
  Receive Date: 20070510
  Receipt Date: 20070430
  Transmission Date: 20071010
  Serious: Yes (Other)
  Sender: FDA-Public Use
  Company Number: US-ELI_LILLY_AND_COMPANY-US200704006536

PATIENT
  Age: 52 Year
  Sex: Female

DRUGS (3)
  1. CYMBALTA [Suspect]
     Indication: PAIN
     Dosage: 60 MG, UNK
     Dates: start: 20060101, end: 20070301
  2. FLUOXETINE [Concomitant]
  3. OTHER ANTIHYPERTENSIVES [Concomitant]
     Dates: end: 20070401

REACTIONS (1)
  - GASTRIC BYPASS [None]
